FAERS Safety Report 24846213 (Version 1)
Quarter: 2025Q1

REPORT INFORMATION
  Report Type: Spontaneous
  Country: US (occurrence: US)
  Receive Date: 20250115
  Receipt Date: 20250115
  Transmission Date: 20250409
  Serious: Yes (Hospitalization, Other)
  Sender: ANI
  Company Number: US-ANIPHARMA-2025-US-001027

PATIENT
  Age: 55 Year
  Sex: Male
  Weight: 105 kg

DRUGS (26)
  1. VANCOMYCIN HYDROCHLORIDE [Suspect]
     Active Substance: VANCOMYCIN HYDROCHLORIDE
     Indication: Product used for unknown indication
  2. CYCLOSPORINE [Concomitant]
     Active Substance: CYCLOSPORINE
  3. DEXAMETHASONE [Concomitant]
     Active Substance: DEXAMETHASONE
  4. DIPHENHYDRAMINE HYDROCHLORIDE [Concomitant]
     Active Substance: DIPHENHYDRAMINE HYDROCHLORIDE
  5. DOCUSATE SODIUM [Concomitant]
     Active Substance: DOCUSATE SODIUM
  6. FLUTICASONE PROPIONATE [Concomitant]
     Active Substance: FLUTICASONE PROPIONATE
  7. HYDROCORTISONE [Concomitant]
     Active Substance: HYDROCORTISONE
  8. LOTEPREDNOL ETABONATE [Concomitant]
     Active Substance: LOTEPREDNOL ETABONATE
  9. METOPROLOL TARTRATE [Concomitant]
     Active Substance: METOPROLOL TARTRATE
  10. MIRTAZAPINE [Concomitant]
     Active Substance: MIRTAZAPINE
  11. PANTOPRAZOLE SODIUM [Concomitant]
     Active Substance: PANTOPRAZOLE SODIUM
  12. JAKAFI [Suspect]
     Active Substance: RUXOLITINIB
     Route: 048
  13. POSACONAZOLE [Concomitant]
     Active Substance: POSACONAZOLE
  14. PRAVASTATIN SODIUM [Concomitant]
     Active Substance: PRAVASTATIN SODIUM
  15. PREDNISONE [Concomitant]
     Active Substance: PREDNISONE
  16. PROPYLENE GLYCOL [Concomitant]
     Active Substance: PROPYLENE GLYCOL
  17. SULFAMETHOXAZOLE\TRIMETHOPRIM [Concomitant]
     Active Substance: SULFAMETHOXAZOLE\TRIMETHOPRIM
  18. TRIAMCINOLONE ACETONIDE [Concomitant]
     Active Substance: TRIAMCINOLONE ACETONIDE
  19. UNSPECIFIED INGREDIENT [Suspect]
     Active Substance: UNSPECIFIED INGREDIENT
  20. ACYCLOVIR [Concomitant]
     Active Substance: ACYCLOVIR
  21. ASPIRIN [Concomitant]
     Active Substance: ASPIRIN
  22. REZUROCK [Concomitant]
     Active Substance: BELUMOSUDIL
  23. CARBOXYMETHYLCELLULOSE SODIUM [Concomitant]
     Active Substance: CARBOXYMETHYLCELLULOSE SODIUM
  24. CETIRIZINE HCL [Concomitant]
     Active Substance: CETIRIZINE HYDROCHLORIDE
  25. CLOBETASOL PROPIONATE [Concomitant]
     Active Substance: CLOBETASOL PROPIONATE
  26. CLOTRIMAZOLE [Concomitant]
     Active Substance: CLOTRIMAZOLE

REACTIONS (12)
  - Folate deficiency [Unknown]
  - Iron deficiency [Unknown]
  - Hypophagia [Unknown]
  - Anaemia [Unknown]
  - Acute kidney injury [Unknown]
  - Immunodeficiency [Unknown]
  - Tumour haemorrhage [Unknown]
  - Hypogammaglobulinaemia [Unknown]
  - Pneumonia [Unknown]
  - Pulmonary embolism [Not Recovered/Not Resolved]
  - Sepsis [Unknown]
  - Vitamin B12 deficiency [Unknown]
